FAERS Safety Report 13840475 (Version 5)
Quarter: 2017Q4

REPORT INFORMATION
  Report Type: Report from Study
  Country: US (occurrence: US)
  Receive Date: 20170807
  Receipt Date: 20171030
  Transmission Date: 20180320
  Serious: Yes (Hospitalization, Other)
  Sender: FDA-Public Use
  Company Number: US-GILEAD-2017-0286407

PATIENT
  Age: 18 Year
  Sex: Female

DRUGS (3)
  1. AZTREONAM LYSINE [Suspect]
     Active Substance: AZTREONAM LYSINE
     Indication: CYSTIC FIBROSIS
     Dosage: 75 MG, UNK
     Route: 055
     Dates: start: 20150410, end: 2017
  2. AZTREONAM LYSINE [Suspect]
     Active Substance: AZTREONAM LYSINE
     Dosage: 75 MG, UNK
     Route: 055
     Dates: start: 20161222
  3. AZTREONAM LYSINE [Suspect]
     Active Substance: AZTREONAM LYSINE
     Dosage: 75 MG, UNK
     Route: 055
     Dates: start: 20170321, end: 2017

REACTIONS (4)
  - Pulmonary function test decreased [Unknown]
  - Drug ineffective [Unknown]
  - Weight decreased [Unknown]
  - Malaise [Not Recovered/Not Resolved]
